FAERS Safety Report 17733874 (Version 1)
Quarter: 2020Q2

REPORT INFORMATION
  Report Type: Spontaneous
  Country: US (occurrence: US)
  Receive Date: 20200501
  Receipt Date: 20200501
  Transmission Date: 20200714
  Serious: Yes (Hospitalization, Other)
  Sender: FDA-Public Use
  Company Number: US-PRINSTON PHARMACEUTICAL INC.-2020PRN00130

PATIENT
  Sex: Female
  Weight: 41.72 kg

DRUGS (5)
  1. CLONAZEPAM. [Suspect]
     Active Substance: CLONAZEPAM
     Dosage: ^INCREASED DOSE^
     Route: 048
  2. LATUDA [Concomitant]
     Active Substance: LURASIDONE HYDROCHLORIDE
  3. CLONAZEPAM. [Suspect]
     Active Substance: CLONAZEPAM
     Indication: PANIC DISORDER
     Dosage: 2 MG, 2X/DAY
     Route: 048
     Dates: start: 2018, end: 202002
  4. CLONAZEPAM. [Suspect]
     Active Substance: CLONAZEPAM
     Indication: PSYCHOTIC DISORDER
     Dosage: UNK
  5. CLONAZEPAM. [Suspect]
     Active Substance: CLONAZEPAM
     Dosage: ^AT 7 AM AND 8 PM^

REACTIONS (24)
  - Seizure [Recovered/Resolved]
  - Ovarian cyst [Unknown]
  - Panic disorder [Unknown]
  - Panic attack [Not Recovered/Not Resolved]
  - Weight gain poor [Not Recovered/Not Resolved]
  - Hallucination [Not Recovered/Not Resolved]
  - Dry mouth [Not Recovered/Not Resolved]
  - Speech disorder [Not Recovered/Not Resolved]
  - Pityriasis rosea [Unknown]
  - Therapeutic response shortened [Not Recovered/Not Resolved]
  - Suicidal ideation [Not Recovered/Not Resolved]
  - Feeling abnormal [Not Recovered/Not Resolved]
  - Drug tolerance [Unknown]
  - Tremor [Not Recovered/Not Resolved]
  - Insomnia [Not Recovered/Not Resolved]
  - Therapeutic product effect decreased [Not Recovered/Not Resolved]
  - Blood pressure decreased [Not Recovered/Not Resolved]
  - Alopecia [Unknown]
  - Suicide attempt [Recovered/Resolved]
  - Anxiety [Not Recovered/Not Resolved]
  - Withdrawal syndrome [Recovered/Resolved]
  - Memory impairment [Not Recovered/Not Resolved]
  - Hypoaesthesia [Not Recovered/Not Resolved]
  - Depressed mood [Not Recovered/Not Resolved]

NARRATIVE: CASE EVENT DATE: 2019
